FAERS Safety Report 11100443 (Version 2)
Quarter: 2015Q2

REPORT INFORMATION
  Report Type: Spontaneous
  Country: US (occurrence: US)
  Receive Date: 20150508
  Receipt Date: 20150611
  Transmission Date: 20150821
  Serious: No
  Sender: FDA-Public Use
  Company Number: US-009507513-1504USA004126

PATIENT
  Age: 60 Year
  Sex: Male
  Weight: 88 kg

DRUGS (13)
  1. AMITRIPTYLINE HYDROCHLORIDE. [Suspect]
     Active Substance: AMITRIPTYLINE HYDROCHLORIDE
     Indication: SLEEP DISORDER
     Dosage: 1 DF, QHS
     Route: 048
     Dates: start: 20150114, end: 20150216
  2. ARTHROTEC [Concomitant]
     Active Substance: DICLOFENAC SODIUM\MISOPROSTOL
     Dosage: 75 MG, BID
  3. ALEVE [Concomitant]
     Active Substance: NAPROXEN SODIUM
     Dosage: UNK, PRN
  4. AMITRIPTYLINE HYDROCHLORIDE. [Suspect]
     Active Substance: AMITRIPTYLINE HYDROCHLORIDE
     Indication: MIGRAINE
     Dosage: 1 DF, HS
     Route: 048
     Dates: start: 2015
  5. AMITRIPTYLINE HYDROCHLORIDE. [Suspect]
     Active Substance: AMITRIPTYLINE HYDROCHLORIDE
     Indication: INSOMNIA
  6. ZOLOFT [Concomitant]
     Active Substance: SERTRALINE HYDROCHLORIDE
     Dosage: 50 MG EVERY NIGHT
  7. IMITREX [Concomitant]
     Active Substance: SUMATRIPTAN\SUMATRIPTAN SUCCINATE
     Indication: INSOMNIA
     Dosage: UNK, PRN
  8. RELPAX [Suspect]
     Active Substance: ELETRIPTAN HYDROBROMIDE
     Indication: MIGRAINE
     Dosage: 20 MG ONE IN A DAY
     Route: 048
     Dates: start: 20150114, end: 20150216
  9. LOTRISONE [Concomitant]
     Active Substance: BETAMETHASONE DIPROPIONATE\CLOTRIMAZOLE
     Dosage: UNK, PRN
  10. CLONAZEPAM. [Concomitant]
     Active Substance: CLONAZEPAM
     Dosage: 0.5 MG, QD
  11. ASCORBIC ACID. [Concomitant]
     Active Substance: ASCORBIC ACID
  12. VITAMIN D [Concomitant]
     Active Substance: CHOLECALCIFEROL
  13. FLEXERIL [Concomitant]
     Active Substance: CYCLOBENZAPRINE HYDROCHLORIDE
     Dosage: 10 MG, HS

REACTIONS (12)
  - Papule [Unknown]
  - Monocyte count increased [Unknown]
  - Drug effect incomplete [Unknown]
  - Blood urea increased [Unknown]
  - Low density lipoprotein increased [Unknown]
  - High density lipoprotein decreased [Unknown]
  - Mean cell haemoglobin concentration decreased [Unknown]
  - Trismus [Recovered/Resolved with Sequelae]
  - Blood chloride increased [Unknown]
  - Laceration [Recovered/Resolved]
  - Neck pain [Unknown]
  - Hyperlipidaemia [Unknown]

NARRATIVE: CASE EVENT DATE: 2015
